FAERS Safety Report 10899702 (Version 4)
Quarter: 2017Q2

REPORT INFORMATION
  Report Type: Report from Study
  Country: US (occurrence: US)
  Receive Date: 20150309
  Receipt Date: 20170424
  Transmission Date: 20170829
  Serious: Yes (Hospitalization)
  Sender: FDA-Public Use
  Company Number: US-009507513-1502USA010489

PATIENT
  Age: 61 Year
  Sex: Male
  Weight: 132.2 kg

DRUGS (14)
  1. PRILOSEC [Concomitant]
     Active Substance: OMEPRAZOLE MAGNESIUM
     Indication: DYSPEPSIA
     Dosage: UNK
     Dates: start: 20150119
  2. COMPAZINE [Concomitant]
     Active Substance: PROCHLORPERAZINE MALEATE
     Indication: NAUSEA
     Dosage: UNK
     Dates: start: 20150116, end: 20150305
  3. TEMSIROLIMUS [Suspect]
     Active Substance: TEMSIROLIMUS
     Dosage: 25 MG, QW, CYCLE 2
     Route: 042
     Dates: start: 20150216, end: 20150216
  4. ZOLADEX [Concomitant]
     Active Substance: GOSERELIN ACETATE
     Dosage: EVERY 3 MONTHS
     Dates: start: 20100301
  5. LOPERAMIDE HYDROCHLORIDE. [Concomitant]
     Active Substance: LOPERAMIDE HYDROCHLORIDE
     Indication: DIARRHOEA
     Dosage: 2 MG, PRN
     Dates: start: 20150119, end: 20150305
  6. ZOCOR [Concomitant]
     Active Substance: SIMVASTATIN
     Indication: HYPERCHOLESTEROLAEMIA
     Dosage: 40 MG
     Route: 048
     Dates: start: 20090222
  7. PREDNISONE. [Concomitant]
     Active Substance: PREDNISONE
     Indication: PROSTATE CANCER
     Dosage: UNK
     Route: 048
     Dates: start: 20120410
  8. VORINOSTAT [Suspect]
     Active Substance: VORINOSTAT
     Indication: PROSTATE CANCER
     Dosage: 400 MG, QD; DAYS 1-14;STRENGTH 100MG
     Route: 048
     Dates: start: 20150112, end: 20150125
  9. VORINOSTAT [Suspect]
     Active Substance: VORINOSTAT
     Dosage: 300 MG, QD; DAYS 1-3 OF CYCLE 2;STRENGTH 100MG
     Route: 048
     Dates: start: 20150216, end: 20150218
  10. ZOLEDRONIC ACID [Concomitant]
     Active Substance: ZOLEDRONIC ACID
     Indication: PROPHYLAXIS
     Dosage: UNK
     Dates: start: 20100510
  11. CALCIUM D (CALCIUM CARBONATE (+) CHOLECALCIFEROL) [Concomitant]
     Indication: ROUTINE HEALTH MAINTENANCE
     Dosage: UNK
     Dates: start: 20100510
  12. TEMSIROLIMUS [Suspect]
     Active Substance: TEMSIROLIMUS
     Indication: PROSTATE CANCER
     Dosage: 25 MG, QW, CYCLE 1
     Route: 042
     Dates: start: 20150112, end: 20150120
  13. PSYLLIUM HUSK [Concomitant]
     Active Substance: PSYLLIUM HUSK
     Indication: CONSTIPATION PROPHYLAXIS
     Dosage: UNK
     Dates: start: 20111221
  14. ADVIL [Concomitant]
     Active Substance: IBUPROFEN
     Dosage: UNK
     Dates: start: 20100222

REACTIONS (2)
  - Pulmonary embolism [Recovered/Resolved]
  - Dyspnoea [Recovered/Resolved]

NARRATIVE: CASE EVENT DATE: 20150218
